FAERS Safety Report 8462675-X (Version None)
Quarter: 2012Q2

REPORT INFORMATION
  Report Type: 
  Country: None (occurrence: None)
  Receive Date: 20120625
  Receipt Date: 20120620
  Transmission Date: 20120825
  Serious: Yes (Death)
  Sender: FDA-Public Use
  Company Number: KR-PFIZER INC-2012149836

PATIENT
  Age: 16 Month
  Sex: Female

DRUGS (7)
  1. ETOPOSIDE [Suspect]
     Indication: BRAIN NEOPLASM MALIGNANT
     Dosage: 2.5 MG/KG ONCE DAILY ON DAYS 0, 1, AND 2 (CECV REGIMEN)
     Route: 042
  2. CISPLATIN [Suspect]
     Indication: BRAIN NEOPLASM MALIGNANT
     Dosage: 3 MG/KG, ONCE DAILY ON DAY 0 (CECV REGIMEN)
     Route: 042
  3. ETOPOSIDE [Suspect]
     Dosage: 2.5 MG/KG ONCE DAILY FOR 5 CONSECUTIVE DAYS FROM DAY 0 (CEIV REGIMEN)
     Route: 042
  4. CARBOPLATIN [Suspect]
     Indication: BRAIN NEOPLASM MALIGNANT
     Dosage: 10 MG/KG DAILY ON DAYS 0
     Route: 042
  5. CYCLOPHOSPHAMIDE [Suspect]
     Indication: BRAIN NEOPLASM MALIGNANT
     Dosage: 50 MG/KG ONCE DAILY ON DAY 1 AND 2 (CECV REGIMEN)
     Route: 042
  6. IFOSFAMIDE [Suspect]
     Indication: BRAIN NEOPLASM MALIGNANT
     Dosage: 50 MG/KG DAILY FOR 5 CONSECUTIVE DAYS FROM DAY 0 (CEIV REGIMEN)
     Route: 042
  7. VINCRISTINE [Suspect]
     Indication: BRAIN NEOPLASM MALIGNANT
     Dosage: 0.05 MG/KG, 1X/DAY, DAY 0 AND 7
     Route: 042

REACTIONS (1)
  - SEPSIS [None]
